FAERS Safety Report 13856594 (Version 1)
Quarter: 2017Q3

REPORT INFORMATION
  Report Type: Spontaneous
  Country: US (occurrence: US)
  Receive Date: 20170810
  Receipt Date: 20170810
  Transmission Date: 20171127
  Serious: No
  Sender: FDA-Public Use
  Company Number: US-009507513-1708USA004036

PATIENT
  Sex: Female

DRUGS (1)
  1. SINEMET [Suspect]
     Active Substance: CARBIDOPA\LEVODOPA
     Dosage: DOSE: 25/100 (UNITS NOT PROVIDED) (STRENGTH: 25-100 TABLETS)
     Route: 048

REACTIONS (2)
  - Product distribution issue [Unknown]
  - Drug dose omission [Unknown]
